FAERS Safety Report 4744911-6 (Version None)
Quarter: 2005Q3

REPORT INFORMATION
  Report Type: 
  Country: None (occurrence: None)
  Receive Date: 20050815
  Receipt Date: 20050630
  Transmission Date: 20060218
  Serious: Yes (Hospitalization)
  Sender: FDA-Public Use
  Company Number: US-MERCK-0507USA00148

PATIENT
  Age: 62 Year
  Sex: Male
  Weight: 105 kg

DRUGS (5)
  1. VIOXX [Suspect]
     Indication: BACK PAIN
     Route: 048
     Dates: start: 20030523, end: 20040901
  2. PREVACID [Concomitant]
     Indication: GASTROOESOPHAGEAL REFLUX DISEASE
     Route: 065
  3. LIPITOR [Concomitant]
     Indication: HYPERLIPIDAEMIA
     Route: 065
  4. AMARYL [Concomitant]
     Indication: DIABETES MELLITUS
     Route: 065
  5. ANALGESIC OR ANESTHETIC (UNSPECIFIED) [Concomitant]
     Indication: PAIN
     Route: 065

REACTIONS (10)
  - ACUTE MYOCARDIAL INFARCTION [None]
  - CARDIOMEGALY [None]
  - CORONARY ARTERY DISEASE [None]
  - DRUG INEFFECTIVE [None]
  - DUODENITIS [None]
  - EXOSTOSIS [None]
  - GASTRITIS [None]
  - HAEMATEMESIS [None]
  - HIATUS HERNIA [None]
  - OSTEOARTHRITIS [None]
